FAERS Safety Report 7426300-9 (Version None)
Quarter: 2011Q2

REPORT INFORMATION
  Report Type: 
  Country: None (occurrence: None)
  Receive Date: 20110420
  Receipt Date: 20110411
  Transmission Date: 20111010
  Serious: Yes (Hospitalization)
  Sender: FDA-Public Use
  Company Number: A0923426A

PATIENT
  Sex: Female

DRUGS (1)
  1. AEROLIN [Suspect]
     Route: 065

REACTIONS (1)
  - CARDIAC ARREST [None]
